FAERS Safety Report 7564305-8 (Version None)
Quarter: 2011Q2

REPORT INFORMATION
  Report Type: 
  Country: None (occurrence: None)
  Receive Date: 20110622
  Receipt Date: 20110415
  Transmission Date: 20111010
  Serious: No
  Sender: FDA-Public Use
  Company Number: US-ALLERGAN-1105299US

PATIENT
  Age: 73 Year
  Sex: Female

DRUGS (1)
  1. LUMIGAN [Suspect]
     Indication: GLAUCOMA
     Dosage: 1 DROP INSTILLED EVERY EVENING TO THE LEFT EYE
     Route: 047
     Dates: start: 20110411

REACTIONS (1)
  - HEADACHE [None]
